FAERS Safety Report 7272726-6 (Version None)
Quarter: 2011Q1

REPORT INFORMATION
  Report Type: 
  Country: None (occurrence: None)
  Receive Date: 20110126
  Receipt Date: 20110113
  Transmission Date: 20110831
  Serious: Yes (Other)
  Sender: FDA-Public Use
  Company Number: 20119958

PATIENT
  Sex: Male

DRUGS (7)
  1. NOCTRAN [Concomitant]
  2. LAROXYL [Concomitant]
  3. LYSANXIA [Concomitant]
  4. MEMANTINE HCL [Concomitant]
  5. LIORESAL [Suspect]
     Indication: MUSCLE SPASTICITY
     Dosage: DAILY, INTRATHECAL
     Route: 037
  6. TRIVASTAL [Concomitant]
  7. NEURONTIN [Concomitant]

REACTIONS (3)
  - HYPOTONIA [None]
  - MIOSIS [None]
  - EPILEPSY [None]
